FAERS Safety Report 9187137 (Version 1)
Quarter: 2013Q1

REPORT INFORMATION
  Report Type: Report from Study
  Country: US (occurrence: US)
  Receive Date: 20130325
  Receipt Date: 20130325
  Transmission Date: 20140127
  Serious: Yes (Other)
  Sender: FDA-Public Use
  Company Number: US-CELGENEUS-163-21880-13032251

PATIENT
  Age: 9 Year
  Sex: Female
  Weight: 49.5 kg

DRUGS (2)
  1. REVLIMID [Suspect]
     Indication: OPTIC GLIOMA
     Dosage: 115 MILLIGRAM/SQ. METER
     Route: 048
     Dates: start: 20120720
  2. REVLIMID [Suspect]
     Dosage: 115 MILLIGRAM/SQ. METER
     Route: 048
     Dates: start: 20130212, end: 20130304

REACTIONS (2)
  - Thrombotic thrombocytopenic purpura [Recovering/Resolving]
  - Febrile neutropenia [Recovering/Resolving]
